FAERS Safety Report 7532404-2 (Version None)
Quarter: 2011Q2

REPORT INFORMATION
  Report Type: 
  Country: None (occurrence: None)
  Receive Date: 20110607
  Receipt Date: 20110607
  Transmission Date: 20111010
  Serious: No
  Sender: FDA-Public Use
  Company Number: None

PATIENT
  Sex: Female
  Weight: 58.2 kg

DRUGS (4)
  1. RISPERIDONE [Suspect]
     Indication: ANXIETY
     Dosage: 1.5 MG HS P.O.; 2MG HS P.O.
     Route: 048
     Dates: start: 20110531
  2. RISPERIDONE [Suspect]
     Indication: DEPRESSION
     Dosage: 1.5 MG HS P.O.; 2MG HS P.O.
     Route: 048
     Dates: start: 20110531
  3. RISPERIDONE [Suspect]
     Indication: ANXIETY
     Dosage: 1.5 MG HS P.O.; 2MG HS P.O.
     Route: 048
     Dates: start: 20110528
  4. RISPERIDONE [Suspect]
     Indication: DEPRESSION
     Dosage: 1.5 MG HS P.O.; 2MG HS P.O.
     Route: 048
     Dates: start: 20110528

REACTIONS (2)
  - AKATHISIA [None]
  - EXTRAPYRAMIDAL DISORDER [None]
